FAERS Safety Report 12896261 (Version 1)
Quarter: 2016Q4

REPORT INFORMATION
  Report Type: Spontaneous
  Country: US (occurrence: US)
  Receive Date: 20161031
  Receipt Date: 20161031
  Transmission Date: 20170207
  Serious: No
  Sender: FDA-Public Use
  Company Number: US-JAZZ-2016-US-016132

PATIENT
  Age: 43 Year
  Sex: Female

DRUGS (29)
  1. XYREM [Suspect]
     Active Substance: SODIUM OXYBATE
     Dosage: 3 G, BID
     Route: 048
     Dates: start: 201608, end: 201608
  2. CLINDAMYCIN. [Concomitant]
     Active Substance: CLINDAMYCIN
  3. ELMIRON [Concomitant]
     Active Substance: PENTOSAN POLYSULFATE SODIUM
  4. HYDROXYZINE HCL [Concomitant]
     Active Substance: HYDROXYZINE HYDROCHLORIDE
  5. XYREM [Suspect]
     Active Substance: SODIUM OXYBATE
     Indication: NARCOLEPSY
     Dosage: 2.25 G, BID
     Route: 048
     Dates: start: 201608, end: 201608
  6. ATORVASTATIN [Concomitant]
     Active Substance: ATORVASTATIN
  7. ESOMEPRAZOLE [Concomitant]
     Active Substance: ESOMEPRAZOLE
  8. FENOFIBRATE. [Concomitant]
     Active Substance: FENOFIBRATE
  9. LISINOPRIL. [Concomitant]
     Active Substance: LISINOPRIL
  10. MULTIVITAMINS [Concomitant]
     Active Substance: VITAMINS
  11. ADAPALENE. [Concomitant]
     Active Substance: ADAPALENE
  12. DOXYCYCLINE HYCLATE. [Concomitant]
     Active Substance: DOXYCYCLINE HYCLATE
  13. FEXOFENADINE HCL [Concomitant]
     Active Substance: FEXOFENADINE HYDROCHLORIDE
  14. RANITIDINE. [Concomitant]
     Active Substance: RANITIDINE
  15. ASPIRIN. [Concomitant]
     Active Substance: ASPIRIN
  16. METRONIDAZOLE. [Concomitant]
     Active Substance: METRONIDAZOLE
  17. ARIPIPRAZOLE. [Concomitant]
     Active Substance: ARIPIPRAZOLE
  18. XYREM [Suspect]
     Active Substance: SODIUM OXYBATE
     Dosage: 3.75 G,BID
     Route: 048
     Dates: start: 201608
  19. CALCIUM +D [Concomitant]
     Active Substance: CALCIUM\VITAMIN D
  20. AMLODIPINE BESYLATE. [Concomitant]
     Active Substance: AMLODIPINE BESYLATE
  21. LAMOTRIGINE. [Concomitant]
     Active Substance: LAMOTRIGINE
  22. NUVIGIL [Concomitant]
     Active Substance: ARMODAFINIL
  23. CLOTRIMAZOLE. [Concomitant]
     Active Substance: CLOTRIMAZOLE
  24. BORIC ACID [Concomitant]
     Active Substance: BORIC ACID
  25. ESTRACE [Concomitant]
     Active Substance: ESTRADIOL
  26. TRIAMCINOLONE [Concomitant]
     Active Substance: TRIAMCINOLONE
  27. VYVANSE [Concomitant]
     Active Substance: LISDEXAMFETAMINE DIMESYLATE
  28. AZELEX [Concomitant]
     Active Substance: AZELAIC ACID
  29. HYDROCHLOROTHIAZIDE. [Concomitant]
     Active Substance: HYDROCHLOROTHIAZIDE

REACTIONS (3)
  - Pyrexia [Unknown]
  - Muscle twitching [Not Recovered/Not Resolved]
  - Feeling jittery [Not Recovered/Not Resolved]

NARRATIVE: CASE EVENT DATE: 201608
